FAERS Safety Report 5299962-2 (Version None)
Quarter: 2007Q2

REPORT INFORMATION
  Report Type: 
  Country: None (occurrence: None)
  Receive Date: 20070410
  Receipt Date: 20070402
  Transmission Date: 20071010
  Serious: Yes (Hospitalization)
  Sender: FDA-Public Use
  Company Number: B0465091A

PATIENT
  Age: 44 Year
  Sex: Female
  Weight: 70.2622 kg

DRUGS (3)
  1. LEXIVA [Suspect]
     Indication: HIV INFECTION
     Dosage: 700 MG / TWICE PER DAY / ORAL
     Route: 048
     Dates: start: 20020513
  2. RITONAVIR (FORMULATION UNKNOWN) (RITONAVIR) [Suspect]
     Indication: HIV INFECTION
     Dosage: 100 MG / TWICE PER DAY / ORAL
     Route: 048
     Dates: start: 20020513
  3. SURGERY (FORMULATION UNKNOWN) (SURGERY) [Suspect]

REACTIONS (2)
  - BREAST ENLARGEMENT [None]
  - LIPODYSTROPHY ACQUIRED [None]
